FAERS Safety Report 7300038-0 (Version None)
Quarter: 2011Q1

REPORT INFORMATION
  Report Type: 
  Country: None (occurrence: None)
  Receive Date: 20110208
  Receipt Date: 20110131
  Transmission Date: 20110831
  Serious: Yes (Other)
  Sender: FDA-Public Use
  Company Number: WAES 1101USA03626

PATIENT
  Age: 72 Year
  Sex: Female
  Weight: 62.5964 kg

DRUGS (6)
  1. NIACIN [Suspect]
     Indication: BLOOD CHOLESTEROL INCREASED
  2. MULTAQ [Concomitant]
  3. ZOCOR [Suspect]
     Indication: BLOOD CHOLESTEROL INCREASED
     Dosage: PO
     Route: 048
     Dates: start: 20010101, end: 20030101
  4. LIPITOR [Suspect]
     Indication: BLOOD CHOLESTEROL INCREASED
     Dosage: 20 MG/DAILY/PO 80 MG/DAILY/PO 40 MG/DAILY/PO
     Route: 048
     Dates: start: 19990101
  5. CRESTOR [Suspect]
     Indication: BLOOD CHOLESTEROL INCREASED
     Dosage: PO
     Route: 048
  6. DIOVAN [Concomitant]

REACTIONS (6)
  - CORONARY ARTERY REOCCLUSION [None]
  - SCRATCH [None]
  - MUSCLE SPASMS [None]
  - VASCULAR GRAFT OCCLUSION [None]
  - HEPATIC ENZYME INCREASED [None]
  - CARDIAC ARREST [None]
